FAERS Safety Report 13573874 (Version 2)
Quarter: 2022Q4

REPORT INFORMATION
  Report Type: Spontaneous
  Country: US (occurrence: US)
  Receive Date: 20170523
  Receipt Date: 20221216
  Transmission Date: 20230112
  Serious: No
  Sender: FDA-Public Use
  Company Number: US-PFIZER INC-2017219840

PATIENT
  Age: 64 Year
  Sex: Female

DRUGS (2)
  1. RAPAMUNE [Suspect]
     Active Substance: SIROLIMUS
     Indication: Transplant
     Dosage: 3 MG, DAILY (1MG THREE TABLETS DAILY)
     Route: 048
     Dates: start: 201703
  2. RAPAMUNE [Suspect]
     Active Substance: SIROLIMUS
     Dosage: 1.5 MG, DAILY (TAKING SIROLIMUS( RAPAMUNE) 1.5MG ORAL (PO) EVERY DAY)
     Route: 048

REACTIONS (2)
  - Cough [Unknown]
  - Nasopharyngitis [Recovering/Resolving]

NARRATIVE: CASE EVENT DATE: 20170101
